FAERS Safety Report 9323806 (Version 1)
Quarter: 2013Q2

REPORT INFORMATION
  Report Type: Spontaneous
  Country: BR (occurrence: BR)
  Receive Date: 20130603
  Receipt Date: 20130603
  Transmission Date: 20140414
  Serious: Yes (Other)
  Sender: FDA-Public Use
  Company Number: BR-ELI_LILLY_AND_COMPANY-BR201305007921

PATIENT
  Age: 56 Year
  Sex: Male
  Weight: 90 kg

DRUGS (2)
  1. HUMULIN NPH [Suspect]
     Indication: TYPE 2 DIABETES MELLITUS
     Dosage: 40 IU, EACH MORNING
     Route: 058
     Dates: start: 20031004
  2. HUMULIN NPH [Suspect]
     Dosage: 30 IU, EACH EVENING
     Route: 058
     Dates: start: 20031004

REACTIONS (3)
  - Blood glucose increased [Unknown]
  - Craniocerebral injury [Unknown]
  - Retinopathy [Unknown]
